FAERS Safety Report 22838980 (Version 3)
Quarter: 2023Q4

REPORT INFORMATION
  Report Type: Spontaneous
  Country: US (occurrence: US)
  Receive Date: 20230818
  Receipt Date: 20231117
  Transmission Date: 20240109
  Serious: No
  Sender: FDA-Public Use
  Company Number: US-Blueprint Medicines Corporation-1357

PATIENT
  Age: 62 Year
  Sex: Male

DRUGS (1)
  1. AYVAKIT [Suspect]
     Active Substance: AVAPRITINIB
     Indication: Gastrointestinal stromal tumour
     Route: 065
     Dates: start: 20230121

REACTIONS (3)
  - Rash erythematous [Unknown]
  - Rash [Not Recovered/Not Resolved]
  - Skin induration [Not Recovered/Not Resolved]

NARRATIVE: CASE EVENT DATE: 20230808
